FAERS Safety Report 15813582 (Version 1)
Quarter: 2019Q1

REPORT INFORMATION
  Report Type: Spontaneous
  Country: US (occurrence: US)
  Receive Date: 20190111
  Receipt Date: 20190111
  Transmission Date: 20190417
  Serious: Yes (Death)
  Sender: FDA-Public Use
  Company Number: None

PATIENT
  Age: 74 Year
  Sex: Female
  Weight: 86.8 kg

DRUGS (10)
  1. AFINITOR [Suspect]
     Active Substance: EVEROLIMUS
     Indication: NEUROENDOCRINE TUMOUR
     Route: 048
     Dates: start: 20181204
  2. CABERGOLINE. [Concomitant]
     Active Substance: CABERGOLINE
  3. LOVASTATIN. [Concomitant]
     Active Substance: LOVASTATIN
  4. HYDROCORTISONE ACETATE-PRAMOXINE [Concomitant]
  5. CLADOSPORIUM CLADOSPORIOIDES. [Concomitant]
     Active Substance: CLADOSPORIUM CLADOSPORIOIDES
  6. ALTERNARIA [Concomitant]
     Active Substance: ALTERNARIA ALTERNATA
  7. MONTELUKAST [Concomitant]
     Active Substance: MONTELUKAST SODIUM
  8. METOPROLOL TARTRATE. [Concomitant]
     Active Substance: METOPROLOL TARTRATE
  9. DICYCLOMINE [Concomitant]
     Active Substance: DICYCLOMINE HYDROCHLORIDE
  10. ONDANSETRON [Concomitant]
     Active Substance: ONDANSETRON

REACTIONS (1)
  - Death [None]
